FAERS Safety Report 19274924 (Version 11)
Quarter: 2025Q1

REPORT INFORMATION
  Report Type: Spontaneous
  Country: US (occurrence: US)
  Receive Date: 20210519
  Receipt Date: 20250114
  Transmission Date: 20250409
  Serious: Yes (Other)
  Sender: PFIZER
  Company Number: US-PFIZER INC-2021509687

PATIENT
  Age: 69 Year
  Sex: Female
  Weight: 99.773 kg

DRUGS (10)
  1. XELJANZ XR [Suspect]
     Active Substance: TOFACITINIB CITRATE
     Indication: Rheumatoid arthritis
  2. LUTEIN [Concomitant]
     Active Substance: LUTEIN
  3. MONTELUKAST SODIUM [Concomitant]
     Active Substance: MONTELUKAST SODIUM
  4. CALCIUM [Concomitant]
     Active Substance: CALCIUM
  5. ADVAIR HFA [Concomitant]
     Active Substance: FLUTICASONE PROPIONATE\SALMETEROL XINAFOATE
  6. MELATONIN [Concomitant]
     Active Substance: MELATONIN
  7. ELIQUIS [Concomitant]
     Active Substance: APIXABAN
  8. OMEPRAZOLE [Concomitant]
     Active Substance: OMEPRAZOLE
  9. ALENDRONATE [Concomitant]
     Active Substance: ALENDRONATE SODIUM
  10. VITAMIN C [Concomitant]
     Active Substance: ASCORBIC ACID

REACTIONS (8)
  - Deafness [Unknown]
  - Cataract [Unknown]
  - Heart rate irregular [Unknown]
  - Cardiac disorder [Unknown]
  - Muscular weakness [Unknown]
  - Drug hypersensitivity [Unknown]
  - Insomnia [Recovering/Resolving]
  - Arthralgia [Unknown]
